FAERS Safety Report 23952244 (Version 2)
Quarter: 2024Q2

REPORT INFORMATION
  Report Type: Spontaneous
  Country: JP (occurrence: None)
  Receive Date: 20240607
  Receipt Date: 20240612
  Transmission Date: 20240716
  Serious: Yes (Death, Hospitalization)
  Sender: FDA-Public Use
  Company Number: 2024A130773

PATIENT
  Age: 80 Year

DRUGS (7)
  1. EVUSHELD [Suspect]
     Active Substance: CILGAVIMAB\TIXAGEVIMAB
     Indication: COVID-19 prophylaxis
     Dosage: DOSE UNKNOWN
     Route: 030
  2. DARATUMUMAB [Concomitant]
     Active Substance: DARATUMUMAB
     Dosage: DOSE UNKNOWN
  3. LENALIDOMIDE [Concomitant]
     Active Substance: LENALIDOMIDE
     Dosage: DOSE UNKNOWN
  4. DEXAMETHASONE [Concomitant]
     Active Substance: DEXAMETHASONE
     Dosage: DOSE UNKNOWN
  5. AZACITIDINE [Concomitant]
     Active Substance: AZACITIDINE
     Dosage: DOSE UNKNOWN
  6. REMITORO [Concomitant]
     Dosage: DOSE UNKNOWN, ADMINISTERED FOR 10 COURSES
  7. RITUXIMAB [Concomitant]
     Active Substance: RITUXIMAB
     Dosage: DOSE UNKNOWN

REACTIONS (2)
  - Plasma cell myeloma [Fatal]
  - COVID-19 [Recovering/Resolving]
